FAERS Safety Report 25175448 (Version 2)
Quarter: 2025Q2

REPORT INFORMATION
  Report Type: Spontaneous
  Country: IT (occurrence: IT)
  Receive Date: 20250408
  Receipt Date: 20250410
  Transmission Date: 20250717
  Serious: Yes (Other)
  Sender: GILEAD
  Company Number: None

PATIENT
  Age: 70 Year
  Sex: Female

DRUGS (1)
  1. TRODELVY [Suspect]
     Active Substance: SACITUZUMAB GOVITECAN-HZIY
     Indication: Breast cancer stage IV
     Route: 042
     Dates: start: 20250228, end: 20250228

REACTIONS (2)
  - Gastrointestinal inflammation [Unknown]
  - Candida infection [Unknown]

NARRATIVE: CASE EVENT DATE: 20250303
